FAERS Safety Report 22125192 (Version 3)
Quarter: 2023Q2

REPORT INFORMATION
  Report Type: Spontaneous
  Country: US (occurrence: US)
  Receive Date: 20230322
  Receipt Date: 20230407
  Transmission Date: 20230722
  Serious: No
  Sender: FDA-Public Use
  Company Number: US-SANOFI-01537885

PATIENT
  Age: 76 Year
  Sex: Female

DRUGS (1)
  1. INSULIN GLARGINE [Suspect]
     Active Substance: INSULIN GLARGINE
     Indication: Diabetes mellitus
     Dosage: 35 TO 55 UNITS QD
     Dates: start: 20221215

REACTIONS (2)
  - Hypoacusis [Unknown]
  - Intentional product misuse [Unknown]
